FAERS Safety Report 24790129 (Version 2)
Quarter: 2025Q1

REPORT INFORMATION
  Report Type: Spontaneous
  Country: FR (occurrence: FR)
  Receive Date: 20241230
  Receipt Date: 20250103
  Transmission Date: 20250408
  Serious: Yes (Other)
  Sender: ELI LILLY AND COMPANY
  Company Number: FR-ELI_LILLY_AND_COMPANY-FR202412017460

PATIENT
  Age: 28 Year
  Sex: Female

DRUGS (2)
  1. RETEVMO [Suspect]
     Active Substance: SELPERCATINIB
     Indication: Non-small cell lung cancer
     Route: 065
  2. RETEVMO [Suspect]
     Active Substance: SELPERCATINIB
     Route: 065

REACTIONS (1)
  - Hepatotoxicity [Recovered/Resolved]
